FAERS Safety Report 6884100-2 (Version None)
Quarter: 2010Q3

REPORT INFORMATION
  Report Type: 
  Country: None (occurrence: None)
  Receive Date: 20100729
  Receipt Date: 20100719
  Transmission Date: 20110219
  Serious: Yes (Other)
  Sender: FDA-Public Use
  Company Number: US-B.I. PHARMACEUTICALS,INC./RIDGEFIELD-2010-DE-03816GD

PATIENT
  Age: 28 Year
  Sex: Female

DRUGS (5)
  1. NEVIRAPINE [Suspect]
     Indication: HIV INFECTION
     Dates: end: 20090801
  2. ZIDOVUDINE [Suspect]
     Indication: HIV INFECTION
     Dates: end: 20090801
  3. LAMIVUDINE [Suspect]
     Indication: HIV INFECTION
     Dates: end: 20090801
  4. FOLIC ACID [Concomitant]
  5. MULTI-VITAMINS [Concomitant]

REACTIONS (6)
  - DRUG EXPOSURE DURING PREGNANCY [None]
  - DRUG TOXICITY [None]
  - HEPATITIS CHOLESTATIC [None]
  - JAUNDICE [None]
  - PRURITUS [None]
  - VANISHING BILE DUCT SYNDROME [None]
